FAERS Safety Report 6067221-6 (Version None)
Quarter: 2009Q1

REPORT INFORMATION
  Report Type: 
  Country: None (occurrence: None)
  Receive Date: 20090204
  Receipt Date: 20090204
  Transmission Date: 20090719
  Serious: No
  Sender: FDA-Public Use
  Company Number: None

PATIENT
  Age: 65 Year
  Sex: Male
  Weight: 29.4838 kg

DRUGS (1)
  1. METOPROLOL SUCCINATE [Suspect]
     Indication: HYPERTENSION
     Dosage: 100MG TWICE DAILY PO
     Route: 048
     Dates: start: 20081201, end: 20081229

REACTIONS (3)
  - ANXIETY [None]
  - INSOMNIA [None]
  - PRODUCT QUALITY ISSUE [None]
